FAERS Safety Report 24107087 (Version 1)
Quarter: 2024Q3

REPORT INFORMATION
  Report Type: Report from Study
  Country: US (occurrence: US)
  Receive Date: 20240718
  Receipt Date: 20240718
  Transmission Date: 20241016
  Serious: No
  Sender: SANDOZ
  Company Number: US-SANDOZ-SDZ2024US065095

PATIENT
  Sex: Female

DRUGS (1)
  1. GLATOPA [Suspect]
     Active Substance: GLATIRAMER ACETATE
     Indication: Multiple sclerosis
     Dosage: 40 MG, OTHER (3 X WEEK, SPACED 48 HOURS APART)
     Route: 058
     Dates: start: 20240626

REACTIONS (3)
  - Injection site pruritus [Unknown]
  - Injection site bruising [Unknown]
  - Wrong device used [Unknown]
